FAERS Safety Report 20728634 (Version 1)
Quarter: 2022Q2

REPORT INFORMATION
  Report Type: Spontaneous
  Country: CA (occurrence: CA)
  Receive Date: 20220420
  Receipt Date: 20220420
  Transmission Date: 20220721
  Serious: Yes (Other)
  Sender: FDA-Public Use
  Company Number: CA-TEVA-2022-CA-2027139

PATIENT
  Sex: Female

DRUGS (8)
  1. CARBOPLATIN [Suspect]
     Active Substance: CARBOPLATIN
     Indication: Ovarian endometrioid carcinoma
     Route: 065
  2. CARBOPLATIN [Suspect]
     Active Substance: CARBOPLATIN
     Route: 065
  3. LETROZOLE [Suspect]
     Active Substance: LETROZOLE
     Indication: Ovarian endometrioid carcinoma
     Route: 065
  4. TAMOXIFEN [Suspect]
     Active Substance: TAMOXIFEN
     Indication: Ovarian endometrioid carcinoma
     Route: 065
  5. MEGESTROL ACETATE\MESTRANOL [Suspect]
     Active Substance: MEGESTROL ACETATE\MESTRANOL
     Indication: Ovarian endometrioid carcinoma
     Route: 065
  6. PACLITAXEL [Suspect]
     Active Substance: PACLITAXEL
     Indication: Ovarian endometrioid carcinoma
     Route: 065
  7. PACLITAXEL [Suspect]
     Active Substance: PACLITAXEL
     Route: 065
  8. PALBOCICLIB [Suspect]
     Active Substance: PALBOCICLIB
     Indication: Ovarian endometrioid carcinoma
     Route: 065

REACTIONS (4)
  - Malignant neoplasm progression [Unknown]
  - Metastases to liver [Unknown]
  - Ovarian endometrioid carcinoma [Unknown]
  - Product use in unapproved indication [Unknown]
